FAERS Safety Report 6904140-4 (Version None)
Quarter: 2010Q3

REPORT INFORMATION
  Report Type: 
  Country: None (occurrence: None)
  Receive Date: 20100804
  Receipt Date: 20090319
  Transmission Date: 20110219
  Serious: No
  Sender: FDA-Public Use
  Company Number: US-PFIZER INC-2009157430

PATIENT
  Sex: Male
  Weight: 149.7 kg

DRUGS (2)
  1. LYRICA [Suspect]
     Indication: PAIN
     Dosage: UNK
     Dates: start: 20081224, end: 20090113
  2. ANALGESICS [Interacting]
     Dosage: UNK

REACTIONS (4)
  - DIZZINESS [None]
  - DRUG INTERACTION [None]
  - OEDEMA PERIPHERAL [None]
  - WEIGHT INCREASED [None]
